FAERS Safety Report 8391633-9 (Version None)
Quarter: 2012Q2

REPORT INFORMATION
  Report Type: 
  Country: None (occurrence: None)
  Receive Date: 20120529
  Receipt Date: 20120515
  Transmission Date: 20120825
  Serious: Yes (Congenital Anomaly, Other)
  Sender: FDA-Public Use
  Company Number: BR-AMGEN-BRASP2012021396

PATIENT
  Age: 59 Year
  Sex: Male
  Weight: 95 kg

DRUGS (6)
  1. ENBREL [Suspect]
     Indication: ANKYLOSING SPONDYLITIS
     Dosage: 50 MG, ONCE WEEKLY
     Route: 058
     Dates: start: 20120101
  2. CRESTOR [Concomitant]
     Indication: LIVER DISORDER
     Dosage: UNK
  3. ENALAPRIL MALEATE [Concomitant]
     Dosage: UNK
  4. METFORMIN HCL [Concomitant]
     Dosage: 850/50 ONCE DAILY
  5. ACETAMINOPHEN [Concomitant]
     Indication: PAIN
     Dosage: UNK
  6. DIPYRONE TAB [Concomitant]
     Indication: PAIN
     Dosage: UNK

REACTIONS (7)
  - PROSTATITIS [None]
  - PROSTATOMEGALY [None]
  - URINARY TRACT INFECTION [None]
  - PLATELET COUNT ABNORMAL [None]
  - WRONG TECHNIQUE IN DRUG USAGE PROCESS [None]
  - INJECTION SITE PAIN [None]
  - DYSURIA [None]
